FAERS Safety Report 6579461-8 (Version None)
Quarter: 2010Q1

REPORT INFORMATION
  Report Type: 
  Country: None (occurrence: None)
  Receive Date: 20100209
  Receipt Date: 20100209
  Transmission Date: 20100710
  Serious: Yes (Hospitalization)
  Sender: FDA-Public Use
  Company Number: None

PATIENT
  Sex: Female
  Weight: 70 kg

DRUGS (1)
  1. TICLID [Suspect]

REACTIONS (4)
  - ARTHRALGIA [None]
  - DEHYDRATION [None]
  - PRURITUS [None]
  - RASH [None]
